FAERS Safety Report 22952192 (Version 3)
Quarter: 2023Q4

REPORT INFORMATION
  Report Type: Report from Study
  Country: US (occurrence: US)
  Receive Date: 20230918
  Receipt Date: 20231213
  Transmission Date: 20240110
  Serious: No
  Sender: FDA-Public Use
  Company Number: US-002147023-NVSC2023US200544

PATIENT
  Sex: Female

DRUGS (2)
  1. ENTRESTO [Suspect]
     Active Substance: SACUBITRIL\VALSARTAN
     Indication: Product used for unknown indication
     Dosage: 1 DOSAGE FORM, BID
     Route: 048
     Dates: start: 202209
  2. ENTRESTO [Suspect]
     Active Substance: SACUBITRIL\VALSARTAN
     Dosage: UNK (LOW DOSE)
     Route: 065
     Dates: start: 20230914

REACTIONS (6)
  - Skin ulcer [Unknown]
  - Gait disturbance [Unknown]
  - Blood glucose decreased [Unknown]
  - Somnolence [Unknown]
  - Blood pressure decreased [Unknown]
  - Memory impairment [Unknown]
